FAERS Safety Report 16649034 (Version 2)
Quarter: 2019Q3

REPORT INFORMATION
  Report Type: Spontaneous
  Country: US (occurrence: US)
  Receive Date: 20190730
  Receipt Date: 20190813
  Transmission Date: 20191004
  Serious: No
  Sender: FDA-Public Use
  Company Number: US-STRONGBRIDGE BIOPHARMA-2019-STR-000190

PATIENT
  Age: 19 Year
  Sex: Female

DRUGS (1)
  1. KEVEYIS [Suspect]
     Active Substance: DICHLORPHENAMIDE
     Indication: FAMILIAL PERIODIC PARALYSIS
     Dosage: 50 MG, BID
     Route: 048
     Dates: start: 20190718, end: 201907

REACTIONS (6)
  - Muscular weakness [Unknown]
  - Heart rate decreased [Unknown]
  - Hypotension [Unknown]
  - Fatigue [Unknown]
  - Joint stiffness [Unknown]
  - Confusional state [Unknown]

NARRATIVE: CASE EVENT DATE: 201907
